FAERS Safety Report 16977083 (Version 1)
Quarter: 2019Q4

REPORT INFORMATION
  Report Type: Spontaneous
  Country: US (occurrence: US)
  Receive Date: 20190913
  Receipt Date: 20190913
  Transmission Date: 20200122
  Serious: Yes (Hospitalization)
  Sender: FDA-Public Use
  Company Number: None

PATIENT
  Age: 77 Year
  Sex: Female
  Weight: 59.87 kg

DRUGS (21)
  1. SERTRALINE [Concomitant]
     Active Substance: SERTRALINE HYDROCHLORIDE
  2. TIZANIDINE. [Concomitant]
     Active Substance: TIZANIDINE
  3. PROBIOTIC ACIDOPHILUS [Concomitant]
     Active Substance: LACTOBACILLUS ACIDOPHILUS
  4. ASPIRIN. [Concomitant]
     Active Substance: ASPIRIN
  5. VALSARTAN. [Concomitant]
     Active Substance: VALSARTAN
  6. PANTOPRAZOLE [Concomitant]
     Active Substance: PANTOPRAZOLE
  7. HYOSCYAMINE. [Concomitant]
     Active Substance: HYOSCYAMINE
  8. CLONIDINE HCL [Concomitant]
     Active Substance: CLONIDINE HYDROCHLORIDE
  9. VITAMIN C [Concomitant]
     Active Substance: ASCORBIC ACID
  10. VITAMIN B6 [Concomitant]
     Active Substance: PYRIDOXINE HYDROCHLORIDE
  11. BAYER ASPIRIN [Concomitant]
     Active Substance: ASPIRIN
  12. CARVEDILOL. [Concomitant]
     Active Substance: CARVEDILOL
  13. VALSARTAN. [Concomitant]
     Active Substance: VALSARTAN
  14. VITAMIN B12 [Concomitant]
     Active Substance: CYANOCOBALAMIN
  15. MAGNESIUM [Concomitant]
     Active Substance: MAGNESIUM
  16. PRAVASTATIN SOLUTION 20MG TAB [Suspect]
     Active Substance: PRAVASTATIN
     Indication: BLOOD CHOLESTEROL INCREASED
     Dosage: ?          QUANTITY:20 MG MILLIGRAM(S);?
     Route: 048
     Dates: start: 2018, end: 20190606
  17. METFORMIN [Concomitant]
     Active Substance: METFORMIN HYDROCHLORIDE
  18. CYANOCOBALAMIN. [Concomitant]
     Active Substance: CYANOCOBALAMIN
  19. MELATONIN [Concomitant]
     Active Substance: MELATONIN
  20. VITAMIN D [Concomitant]
     Active Substance: VITAMIN D NOS
  21. CQ10 [Concomitant]
     Active Substance: UBIDECARENONE

REACTIONS (17)
  - Impaired driving ability [None]
  - Depression [None]
  - Fatigue [None]
  - Gait disturbance [None]
  - Insomnia [None]
  - Loss of personal independence in daily activities [None]
  - Memory impairment [None]
  - Mental impairment [None]
  - Disturbance in attention [None]
  - Hypertension [None]
  - Diarrhoea [None]
  - Pain [None]
  - Dizziness [None]
  - Abdominal pain [None]
  - Peripheral swelling [None]
  - Migraine [None]
  - Pain in extremity [None]

NARRATIVE: CASE EVENT DATE: 20180301
